FAERS Safety Report 6311187-8 (Version None)
Quarter: 2009Q3

REPORT INFORMATION
  Report Type: 
  Country: None (occurrence: None)
  Receive Date: 20090812
  Receipt Date: 20090730
  Transmission Date: 20100115
  Serious: Yes (Death)
  Sender: FDA-Public Use
  Company Number: 1000007846

PATIENT
  Age: 21 Year
  Sex: Female

DRUGS (3)
  1. ESCITALOPRAM [Suspect]
     Dosage: 15 MG (15 MG, 1IN 1 D)
     Dates: start: 20090527
  2. FLUANXOL(TABLETS) [Suspect]
     Dosage: 0.5 MG (0.5 MG, 1 IN 1 D), ORAL
     Route: 048
     Dates: start: 20090527
  3. MIANSERIN [Suspect]
     Dosage: 10 MG (10 MG, 1 IN 1 D)

REACTIONS (2)
  - CARDIAC FAILURE [None]
  - FALL [None]
